FAERS Safety Report 4591219-8 (Version None)
Quarter: 2005Q1

REPORT INFORMATION
  Report Type: 
  Country: None (occurrence: None)
  Receive Date: 20050222
  Receipt Date: 20050210
  Transmission Date: 20050727
  Serious: Yes (Hospitalization, Other)
  Sender: FDA-Public Use
  Company Number: 2005-02-0540

PATIENT
  Age: 44 Year
  Sex: Female
  Weight: 72 kg

DRUGS (2)
  1. AERIUS (DESLORATADINE) TABLETS 'LIKE CLARINEX' [Suspect]
     Dosage: 1 TAB QD ORAL
     Route: 048
     Dates: start: 20050111, end: 20050116
  2. LOGIRENE (AMLORIDE HCL/ FRUSEMIDE) TABLETS [Suspect]
     Indication: ESSENTIAL HYPERTENSION
     Dosage: 1 TAB QD ORAL
     Route: 048
     Dates: end: 20050116

REACTIONS (2)
  - CHOLELITHIASIS [None]
  - PANCREATITIS ACUTE [None]
